FAERS Safety Report 21258525 (Version 1)
Quarter: 2022Q3

REPORT INFORMATION
  Report Type: Spontaneous
  Country: IN (occurrence: IN)
  Receive Date: 20220826
  Receipt Date: 20220826
  Transmission Date: 20221026
  Serious: Yes (Hospitalization, Other)
  Sender: FDA-Public Use
  Company Number: IN-PFIZER INC-2021583703

PATIENT
  Age: 67 Year
  Sex: Female

DRUGS (4)
  1. PALBOCICLIB [Suspect]
     Active Substance: PALBOCICLIB
     Indication: Breast cancer metastatic
     Dosage: 125 MG, 1X/DAY
     Route: 048
     Dates: start: 20210306, end: 202206
  2. PALBOCICLIB [Suspect]
     Active Substance: PALBOCICLIB
     Dosage: 125 MG, 1X/DAY
     Route: 048
     Dates: start: 20210308
  3. PALBOCICLIB [Suspect]
     Active Substance: PALBOCICLIB
     Dosage: 125 MG, 1X/DAY
     Route: 048
     Dates: start: 20210309
  4. FULVESTRANT [Concomitant]
     Active Substance: FULVESTRANT
     Dosage: UNK

REACTIONS (12)
  - Weight decreased [Unknown]
  - General physical health deterioration [Unknown]
  - Neoplasm progression [Unknown]
  - Alopecia [Unknown]
  - Dry skin [Unknown]
  - Throat irritation [Unknown]
  - Nausea [Unknown]
  - Decreased appetite [Unknown]
  - Weight increased [Unknown]
  - Pruritus [Unknown]
  - Walking disability [Unknown]
  - Feeding disorder [Unknown]
